FAERS Safety Report 7353027-4 (Version None)
Quarter: 2011Q1

REPORT INFORMATION
  Report Type: 
  Country: None (occurrence: None)
  Receive Date: 20110225
  Receipt Date: 20110113
  Transmission Date: 20110831
  Serious: No
  Sender: FDA-Public Use
  Company Number: 321567

PATIENT
  Age: 67 Year
  Sex: Male
  Weight: 95.2 kg

DRUGS (2)
  1. VICTOZA [Suspect]
     Indication: TYPE 2 DIABETES MELLITUS
     Dosage: SUBCUTANEOUS
     Route: 058
     Dates: start: 20101019
  2. NOVOLOG [Concomitant]

REACTIONS (1)
  - NAUSEA [None]
